FAERS Safety Report 7964404 (Version 4)
Quarter: 2013Q4

REPORT INFORMATION
  Report Type: Spontaneous
  Country: US (occurrence: US)
  Receive Date: 20110527
  Receipt Date: 20131211
  Transmission Date: 20140711
  Serious: Yes (Other)
  Sender: FDA-Public Use
  Company Number: US-JNJFOC-20110509336

PATIENT
  Age: 37 Year
  Sex: Female

DRUGS (3)
  1. UNSPECIFIED FENTANYL TRANSDERMAL SYSTEM [Suspect]
     Indication: RHEUMATOID ARTHRITIS
     Route: 062
     Dates: start: 201103, end: 20110429
  2. SANDOZ FENTANYL TRANSDERMAL SYSTEM [Suspect]
     Indication: RHEUMATOID ARTHRITIS
     Dosage: NDC: 0781-7242-55
     Route: 062
     Dates: start: 20110429
  3. PLAQUENIL [Concomitant]
     Indication: RHEUMATOID ARTHRITIS
     Route: 048

REACTIONS (6)
  - Rheumatoid arthritis [Not Recovered/Not Resolved]
  - Product quality issue [Unknown]
  - Withdrawal syndrome [Not Recovered/Not Resolved]
  - Formication [Not Recovered/Not Resolved]
  - Tremor [Not Recovered/Not Resolved]
  - Drug ineffective [Not Recovered/Not Resolved]
